FAERS Safety Report 26111159 (Version 1)
Quarter: 2025Q4

REPORT INFORMATION
  Report Type: Spontaneous
  Country: NI (occurrence: NI)
  Receive Date: 20251202
  Receipt Date: 20251202
  Transmission Date: 20260118
  Serious: Yes (Other)
  Sender: NOVARTIS
  Company Number: NI-002147023-NVSC2025NI131172

PATIENT
  Sex: Male

DRUGS (1)
  1. GLIVEC [Suspect]
     Active Substance: IMATINIB MESYLATE
     Indication: Gastrointestinal stromal tumour
     Dosage: 400 MG (1 X 400  MG)
     Route: 065

REACTIONS (3)
  - Fistula [Unknown]
  - Abdominal pain upper [Unknown]
  - Nausea [Unknown]
